FAERS Safety Report 8855348 (Version 1)
Quarter: 2012Q4

REPORT INFORMATION
  Report Type: 
  Country: US (occurrence: US)
  Receive Date: 20121023
  Receipt Date: 20121023
  Transmission Date: 20130627
  Serious: No
  Sender: FDA-Public Use
  Company Number: US-AMGEN-USASP2012020764

PATIENT
  Age: 74 Year
  Sex: Female
  Weight: 68.02 kg

DRUGS (10)
  1. ENBREL [Suspect]
     Indication: RHEUMATOID ARTHRITIS
     Dosage: 25 mg, 2 times/wk
     Route: 058
  2. SIMVASTATIN [Concomitant]
     Dosage: 80 mg, UNK
  3. ACTONEL [Concomitant]
     Dosage: 5 mg, UNK
  4. METOPROLOL [Concomitant]
     Dosage: 200 mg, UNK
  5. PREDNISONE [Concomitant]
     Dosage: 5 mg, UNK
  6. TOLMETIN SODIUM [Concomitant]
     Dosage: 200 mg, UNK
  7. CALCIUM [Concomitant]
     Dosage: UNK
  8. RANITIDINE [Concomitant]
     Dosage: 15 mg, UNK
  9. FOLIC ACID [Concomitant]
     Dosage: UNK
  10. METHOTREXATE [Concomitant]
     Dosage: 25 mg, UNK

REACTIONS (3)
  - Localised infection [Unknown]
  - Infection [Unknown]
  - Abscess neck [Unknown]
